FAERS Safety Report 17002022 (Version 1)
Quarter: 2019Q4

REPORT INFORMATION
  Report Type: Spontaneous
  Country: GB (occurrence: GB)
  Receive Date: 20191106
  Receipt Date: 20191106
  Transmission Date: 20200122
  Serious: Yes (Other)
  Sender: FDA-Public Use
  Company Number: GB-ELI_LILLY_AND_COMPANY-GB201910015096

PATIENT
  Age: 25 Year
  Sex: Male
  Weight: 50.8 kg

DRUGS (3)
  1. DULOXETINE HYDROCHLORIDE. [Suspect]
     Active Substance: DULOXETINE HYDROCHLORIDE
     Indication: NEURALGIA
     Dosage: 30 MG, UNKNOWN
     Route: 048
     Dates: start: 20180727, end: 20180728
  2. SOLPADOL [CODEINE PHOSPHATE;PARACETAMOL] [Concomitant]
     Indication: PRODUCT USED FOR UNKNOWN INDICATION
     Dosage: UNK UNK, UNKNOWN
     Route: 065
  3. TESTOGEL [Concomitant]
     Active Substance: TESTOSTERONE
     Indication: PRODUCT USED FOR UNKNOWN INDICATION
     Dosage: UNK UNK, UNKNOWN
     Route: 065

REACTIONS (14)
  - Blood pressure increased [Unknown]
  - Hot flush [Unknown]
  - Mydriasis [Unknown]
  - Hyperhidrosis [Unknown]
  - Serotonin syndrome [Not Recovered/Not Resolved]
  - Hypervigilance [Unknown]
  - Tremor [Not Recovered/Not Resolved]
  - Heart rate irregular [Unknown]
  - Dissociation [Unknown]
  - Sensory disturbance [Unknown]
  - Nausea [Unknown]
  - Ataxia [Unknown]
  - Muscle rigidity [Unknown]
  - Vomiting [Unknown]

NARRATIVE: CASE EVENT DATE: 20180727
